FAERS Safety Report 13727742 (Version 4)
Quarter: 2017Q3

REPORT INFORMATION
  Report Type: Spontaneous
  Country: MX (occurrence: MX)
  Receive Date: 20170707
  Receipt Date: 20170712
  Transmission Date: 20171127
  Serious: Yes (Other)
  Sender: FDA-Public Use
  Company Number: ALCN2016MX007145

PATIENT
  Age: 79 Year
  Sex: Female

DRUGS (10)
  1. MOXIFLOXACIN. [Suspect]
     Active Substance: MOXIFLOXACIN
     Dosage: 1 GTT, Q2H
     Route: 047
  2. MOXIFLOXACIN. [Suspect]
     Active Substance: MOXIFLOXACIN
     Indication: KERATITIS BACTERIAL
     Dosage: 1 GTT, QH
     Route: 047
  3. DEXAMETHASONE. [Suspect]
     Active Substance: DEXAMETHASONE
     Indication: EYE PAIN
     Dosage: 1 GTT, QH
     Route: 047
  4. DEXAMETHASONE. [Suspect]
     Active Substance: DEXAMETHASONE
     Indication: KERATITIS BACTERIAL
  5. PHENYLEPHRINE HCL [Suspect]
     Active Substance: PHENYLEPHRINE HYDROCHLORIDE
     Indication: OCULAR HYPERAEMIA
  6. DEXAMETHASONE. [Suspect]
     Active Substance: DEXAMETHASONE
     Indication: OCULAR HYPERAEMIA
     Dosage: 1 GTT, Q2H
     Route: 047
  7. PHENYLEPHRINE HCL [Suspect]
     Active Substance: PHENYLEPHRINE HYDROCHLORIDE
     Indication: EYE PAIN
     Dosage: UNK
     Route: 047
  8. MOXIFLOXACIN. [Suspect]
     Active Substance: MOXIFLOXACIN
     Indication: EYE INFECTION
     Dosage: 1 DF, QH
     Route: 047
  9. ATROPINE SULFATE. [Suspect]
     Active Substance: ATROPINE SULFATE
     Indication: EYE PAIN
     Dosage: UNK
     Route: 047
  10. ATROPINE SULFATE. [Suspect]
     Active Substance: ATROPINE SULFATE
     Indication: OCULAR HYPERAEMIA

REACTIONS (6)
  - Corneal thinning [Recovered/Resolved with Sequelae]
  - Corneal infiltrates [Recovered/Resolved with Sequelae]
  - Ulcerative keratitis [Recovered/Resolved with Sequelae]
  - Disease progression [Recovered/Resolved with Sequelae]
  - Drug ineffective [Unknown]
  - Eye pain [Unknown]
